FAERS Safety Report 6612609-5 (Version None)
Quarter: 2010Q1

REPORT INFORMATION
  Report Type: 
  Country: None (occurrence: None)
  Receive Date: 20100303
  Receipt Date: 20100222
  Transmission Date: 20100710
  Serious: Yes (Hospitalization, Other)
  Sender: FDA-Public Use
  Company Number: US-PFIZER INC-2010023617

PATIENT
  Sex: Female
  Weight: 52.2 kg

DRUGS (5)
  1. AROMASIN [Suspect]
     Indication: BREAST CANCER METASTATIC
     Dosage: 25 MG, 1X/DAY
     Dates: start: 20090101
  2. LAMICTAL [Concomitant]
     Dosage: UNK
  3. ABILIFY [Concomitant]
     Dosage: UNK
  4. LORAZEPAM [Concomitant]
     Dosage: UNK
  5. TYLENOL-500 [Concomitant]
     Dosage: UNK

REACTIONS (5)
  - HEPATIC NEOPLASM [None]
  - LIVER INJURY [None]
  - PLEURAL EFFUSION [None]
  - PYREXIA [None]
  - WOUND INFECTION [None]
